FAERS Safety Report 5412231-2 (Version None)
Quarter: 2007Q3

REPORT INFORMATION
  Report Type: 
  Country: None (occurrence: None)
  Receive Date: 20070809
  Receipt Date: 20070801
  Transmission Date: 20080115
  Serious: Yes (Other)
  Sender: FDA-Public Use
  Company Number: 2007-03597

PATIENT
  Age: 70 Year
  Sex: Male

DRUGS (5)
  1. CEFAZOLIN SODIUM [Suspect]
     Indication: PREOPERATIVE CARE
     Dosage: X 2 DAYS, INTRAVENOUS
     Route: 042
     Dates: start: 20070101, end: 20070101
  2. CEFTRIAXONE [Suspect]
     Indication: BACTERAEMIA
     Dosage: X 6 WEEKS, INTRAVENOUS
     Route: 042
     Dates: start: 20070101, end: 20070101
  3. CEFTRIAXONE [Suspect]
     Indication: WOUND
     Dosage: X 6 WEEKS, INTRAVENOUS
     Route: 042
     Dates: start: 20070101, end: 20070101
  4. PIPERACILLIN SODIUM W/TAZOBACTAM SODIUM (PIPERACILLIN SODIUM, TAZOBACT [Suspect]
  5. IMIPENEM (IMIPENEM) [Concomitant]

REACTIONS (3)
  - BLOOD LACTATE DEHYDROGENASE INCREASED [None]
  - DRUG SPECIFIC ANTIBODY PRESENT [None]
  - HAEMOLYTIC ANAEMIA [None]
